FAERS Safety Report 23611272 (Version 3)
Quarter: 2024Q2

REPORT INFORMATION
  Report Type: Spontaneous
  Country: JP (occurrence: JP)
  Receive Date: 20240308
  Receipt Date: 20240417
  Transmission Date: 20240716
  Serious: Yes (Hospitalization, Other)
  Sender: FDA-Public Use
  Company Number: JP-BIOVITRUM-2024-JP-001217

PATIENT

DRUGS (1)
  1. EMPAVELI [Suspect]
     Active Substance: PEGCETACOPLAN
     Indication: Paroxysmal nocturnal haemoglobinuria
     Dosage: 1080 MILLIGRAM
     Route: 058
     Dates: start: 20231204

REACTIONS (10)
  - COVID-19 [Recovered/Resolved]
  - Pneumonia [Recovering/Resolving]
  - Delirium [Recovered/Resolved]
  - Malaise [Recovered/Resolved]
  - Anaemia [Recovering/Resolving]
  - Rhinorrhoea [Recovering/Resolving]
  - Productive cough [Not Recovered/Not Resolved]
  - Dysphonia [Not Recovered/Not Resolved]
  - Pollakiuria [Recovered/Resolved]
  - Gait disturbance [Not Recovered/Not Resolved]
